FAERS Safety Report 24128059 (Version 1)
Quarter: 2024Q3

REPORT INFORMATION
  Report Type: Report from Study
  Country: US (occurrence: US)
  Receive Date: 20240723
  Receipt Date: 20240723
  Transmission Date: 20241016
  Serious: No
  Sender: VANDA PHARMACEUTICALS
  Company Number: US-VANDA PHARMACEUTICALS, INC-2023TASUS006877

PATIENT
  Sex: Female
  Weight: 56.372 kg

DRUGS (5)
  1. HETLIOZ LQ [Suspect]
     Active Substance: TASIMELTEON
     Indication: Product used for unknown indication
     Dosage: 5 MILLILITER, QHS, (NIGHTLY)
     Route: 048
  2. HETLIOZ LQ [Suspect]
     Active Substance: TASIMELTEON
     Dosage: 5 MILLILITER, QHS, (NIGHTLY)
     Route: 048
  3. HETLIOZ LQ [Suspect]
     Active Substance: TASIMELTEON
     Dosage: 5 MILLILITER, QHS, 1 HOUR BEFORE BEDTIME AT SAME TIME EVERY NIGHT
     Route: 048
  4. HETLIOZ LQ [Suspect]
     Active Substance: TASIMELTEON
     Dosage: 5 MILLILITER, EVERY 24 HOURS (1 HOUR BEFORE BEDTIME AT SAME TIME EVERY NIGHT, WITHOUT FOOD)
     Route: 048
  5. ALBUTEROL SULFATE [Concomitant]
     Active Substance: ALBUTEROL SULFATE
     Indication: Product used for unknown indication
     Dosage: 2.5 MG/3ML VIAL-NEB
     Route: 055

REACTIONS (7)
  - Middle insomnia [Unknown]
  - Terminal insomnia [Unknown]
  - Weight increased [Unknown]
  - Food craving [Unknown]
  - Product use in unapproved indication [Unknown]
  - Drug ineffective [Unknown]
  - Therapeutic product effect decreased [Unknown]
